FAERS Safety Report 10349896 (Version 2)
Quarter: 2014Q3

REPORT INFORMATION
  Report Type: Spontaneous
  Country: CN (occurrence: CN)
  Receive Date: 20140730
  Receipt Date: 20140829
  Transmission Date: 20150326
  Serious: Yes (Other)
  Sender: FDA-Public Use
  Company Number: CN-JNJFOC-20140713929

PATIENT
  Age: 39 Year
  Sex: Male

DRUGS (1)
  1. DAKTAGOLD [Suspect]
     Active Substance: KETOCONAZOLE
     Indication: PRURITUS
     Dosage: 15G, 2-3 TIMES PER DAY
     Route: 061
     Dates: start: 20140701, end: 20140713

REACTIONS (5)
  - Blister [Not Recovered/Not Resolved]
  - Off label use [Unknown]
  - Intentional product misuse [Unknown]
  - Genital swelling [Recovered/Resolved]
  - Dermatitis allergic [Not Recovered/Not Resolved]

NARRATIVE: CASE EVENT DATE: 20140701
